FAERS Safety Report 6923806-3 (Version None)
Quarter: 2010Q3

REPORT INFORMATION
  Report Type: 
  Country: None (occurrence: None)
  Receive Date: 20100813
  Receipt Date: 20100811
  Transmission Date: 20110219
  Serious: Yes (Life-Threatening, Hospitalization, Other)
  Sender: FDA-Public Use
  Company Number: GXKR2010DE08986

PATIENT
  Age: 71 Year
  Sex: Male
  Weight: 46 kg

DRUGS (6)
  1. CLARITHROMYCIN HEXAL (NGX) [Suspect]
     Dosage: 500 MG, BID
     Route: 048
     Dates: start: 20100409, end: 20100415
  2. PROGRAF [Interacting]
     Indication: VASCULAR GRAFT
     Dosage: 1 MG, QD
     Route: 048
     Dates: start: 20030101
  3. ACETYLSALICYLIC ACID SRT [Concomitant]
     Route: 048
  4. NORVASC [Concomitant]
     Route: 048
  5. TORSEMIDE [Concomitant]
  6. SIMVASTATIN [Concomitant]

REACTIONS (3)
  - PERICARDIAL EFFUSION [None]
  - PLEURAL EFFUSION [None]
  - RENAL FAILURE ACUTE [None]
